FAERS Safety Report 9246031 (Version 3)
Quarter: 2013Q4

REPORT INFORMATION
  Report Type: Spontaneous
  Country: GB (occurrence: GB)
  Receive Date: 20130422
  Receipt Date: 20131106
  Transmission Date: 20140711
  Serious: Yes (Disabling, Other)
  Sender: FDA-Public Use
  Company Number: PHHY2013GB034882

PATIENT
  Age: 64 Year
  Sex: Male
  Weight: 86 kg

DRUGS (4)
  1. DICLOFENAC [Suspect]
     Indication: BACK PAIN
     Dosage: 50 MG, TID
     Dates: start: 20121220
  2. FINASTERIDE [Suspect]
     Dosage: UNK UKN, UNK
     Dates: start: 20130130
  3. OMEPRAZOLE [Concomitant]
     Dosage: UNK UKN, UNK
     Route: 065
     Dates: start: 20121220
  4. PROCHLORPERAZINE [Concomitant]
     Route: 065
     Dates: start: 20130108, end: 20130115

REACTIONS (2)
  - Back pain [Recovered/Resolved]
  - Drug interaction [Recovered/Resolved]
